FAERS Safety Report 6328329-0 (Version None)
Quarter: 2009Q3

REPORT INFORMATION
  Report Type: 
  Country: None (occurrence: None)
  Receive Date: 20090825
  Receipt Date: 20090722
  Transmission Date: 20100115
  Serious: No
  Sender: FDA-Public Use
  Company Number: US-ABBOTT-09P-163-0569700-00

PATIENT
  Sex: Male
  Weight: 53.118 kg

DRUGS (4)
  1. SYNTHROID [Suspect]
     Indication: HYPOTHYROIDISM
     Route: 048
     Dates: start: 19840101
  2. SYNTHROID [Suspect]
     Route: 048
  3. SYNTHROID [Suspect]
     Route: 048
     Dates: start: 20090421
  4. SYNTHROID [Suspect]
     Dates: start: 20090722

REACTIONS (4)
  - FOOD ALLERGY [None]
  - FREQUENT BOWEL MOVEMENTS [None]
  - MALABSORPTION [None]
  - WEIGHT DECREASED [None]
